FAERS Safety Report 16140967 (Version 2)
Quarter: 2019Q2

REPORT INFORMATION
  Report Type: Spontaneous
  Country: DE (occurrence: DE)
  Receive Date: 20190401
  Receipt Date: 20190408
  Transmission Date: 20190711
  Serious: Yes (Hospitalization, Other)
  Sender: FDA-Public Use
  Company Number: DE-MYLANLABS-2019M1028339

PATIENT
  Age: 83 Year
  Sex: Female
  Weight: 48 kg

DRUGS (9)
  1. NAROPIN [Suspect]
     Active Substance: ROPIVACAINE HYDROCHLORIDE
     Indication: PAIN IN EXTREMITY
     Dosage: UNK(TRIAM AND NAROPIN 20 INJ 1 X O,5 UND 2MG 10 ML)
     Route: 008
     Dates: start: 20180622
  2. NOVALGIN (METAMIZOLE SODIUM) [Suspect]
     Active Substance: METAMIZOLE SODIUM
     Indication: SCIATICA
     Dosage: UNK(NICHT IN H?HE BEKANNT)
     Route: 042
     Dates: start: 20180628
  3. LEVETIRACETAM. [Suspect]
     Active Substance: LEVETIRACETAM
     Indication: EPILEPSY
     Dosage: 500 MILLIGRAM, BID(500-0-500 TAPERING OF KEPPRA SINCE 29 AUG)
     Route: 048
     Dates: start: 20180816
  4. GABAPENTIN. [Suspect]
     Active Substance: GABAPENTIN
     Indication: NEURALGIA
     Dosage: UNK(500??)
     Route: 048
     Dates: start: 20180730
  5. LEVETIRACETAM. [Suspect]
     Active Substance: LEVETIRACETAM
     Indication: CEREBRAL HAEMORRHAGE
     Dosage: 500 MILLIGRAM, BID(500-0-500   )
     Route: 042
     Dates: start: 20180702, end: 20180709
  6. COTRIM FORTE [Suspect]
     Active Substance: SULFAMETHOXAZOLE\TRIMETHOPRIM
     Indication: CYSTITIS NONINFECTIVE
     Dosage: UNK(?)
     Route: 048
     Dates: start: 20180811, end: 20180816
  7. LORAZEPAM. [Suspect]
     Active Substance: LORAZEPAM
     Indication: PRODUCT USED FOR UNKNOWN INDICATION
     Dosage: UNK
  8. TRIAM                              /00012501/ [Suspect]
     Active Substance: TRIAMCINOLONE
     Indication: SCIATICA
     Dosage: UNK(TRIAM AND NAROPIN 20 INJ 1 X O,5 UND 2MG 10 ML)
     Route: 008
     Dates: start: 20180622
  9. IOD                                /00082201/ [Suspect]
     Active Substance: IODINE
     Indication: PRODUCT USED FOR UNKNOWN INDICATION
     Dosage: UNK

REACTIONS (8)
  - Sopor [Unknown]
  - Dysphagia [Recovering/Resolving]
  - Platelet count decreased [Unknown]
  - Somnolence [Unknown]
  - Gamma-glutamyltransferase increased [Unknown]
  - Loss of consciousness [Recovering/Resolving]
  - Cerebral haemorrhage [Unknown]
  - Epilepsy [Unknown]

NARRATIVE: CASE EVENT DATE: 20180622
